FAERS Safety Report 14973420 (Version 3)
Quarter: 2019Q1

REPORT INFORMATION
  Report Type: Spontaneous
  Country: FR (occurrence: FR)
  Receive Date: 20180605
  Receipt Date: 20190122
  Transmission Date: 20190417
  Serious: Yes (Life-Threatening, Hospitalization, Other)
  Sender: FDA-Public Use
  Company Number: FR-ASTRAZENECA-2018SE71522

PATIENT
  Age: 2279 Week
  Sex: Male

DRUGS (7)
  1. QUETIAPINE. [Suspect]
     Active Substance: QUETIAPINE
     Indication: MENTAL DISORDER
     Dosage: UNKNOWN QUANTITY UNKNOWN
     Route: 048
     Dates: start: 20171106, end: 20171106
  2. QUETIAPINE. [Suspect]
     Active Substance: QUETIAPINE
     Indication: MENTAL DISORDER
     Dosage: 300 MG AT EVENING UNKNOWN
     Route: 048
  3. QUETIAPINE. [Suspect]
     Active Substance: QUETIAPINE
     Indication: MENTAL DISORDER
     Dosage: 300.0MG UNKNOWN
     Route: 048
  4. IMOVANE [Suspect]
     Active Substance: ZOPICLONE
     Indication: INSOMNIA
     Dosage: UNKNOWN QUANTITY
     Route: 065
     Dates: start: 20171106, end: 20171106
  5. VALIUM [Suspect]
     Active Substance: DIAZEPAM
     Indication: ALCOHOL WITHDRAWAL SYNDROME
     Route: 065
  6. IMOVANE [Suspect]
     Active Substance: ZOPICLONE
     Indication: INSOMNIA
     Route: 065
  7. VALIUM [Suspect]
     Active Substance: DIAZEPAM
     Indication: ALCOHOL WITHDRAWAL SYNDROME
     Dosage: UNKNOWN QUANTITY
     Route: 065
     Dates: start: 20171106, end: 20171106

REACTIONS (4)
  - Altered state of consciousness [Recovered/Resolved]
  - Intentional overdose [Unknown]
  - Pneumonia aspiration [Unknown]
  - Wernicke^s encephalopathy [Recovered/Resolved]

NARRATIVE: CASE EVENT DATE: 20171106
